FAERS Safety Report 19393287 (Version 2)
Quarter: 2022Q1

REPORT INFORMATION
  Report Type: Spontaneous
  Country: US (occurrence: US)
  Receive Date: 20210609
  Receipt Date: 20220218
  Transmission Date: 20220424
  Serious: Yes (Other)
  Sender: FDA-Public Use
  Company Number: US-GILEAD-2021-0534874

PATIENT
  Age: 45 Year
  Sex: Male
  Weight: 54.875 kg

DRUGS (45)
  1. TRUVADA [Suspect]
     Active Substance: EMTRICITABINE\TENOFOVIR DISOPROXIL FUMARATE
     Indication: HIV infection
     Dosage: UNK
     Route: 048
     Dates: start: 20060511, end: 200810
  2. TRUVADA [Suspect]
     Active Substance: EMTRICITABINE\TENOFOVIR DISOPROXIL FUMARATE
     Dosage: UNK
     Route: 048
     Dates: start: 20090216, end: 200905
  3. TRUVADA [Suspect]
     Active Substance: EMTRICITABINE\TENOFOVIR DISOPROXIL FUMARATE
     Dosage: UNK
     Route: 048
     Dates: start: 20100823, end: 201104
  4. TRUVADA [Suspect]
     Active Substance: EMTRICITABINE\TENOFOVIR DISOPROXIL FUMARATE
     Dosage: UNK
     Route: 048
     Dates: start: 20120408, end: 201306
  5. TRUVADA [Suspect]
     Active Substance: EMTRICITABINE\TENOFOVIR DISOPROXIL FUMARATE
     Dosage: UNK
     Route: 048
     Dates: start: 20140220, end: 201608
  6. DESCOVY [Concomitant]
     Active Substance: EMTRICITABINE\TENOFOVIR ALAFENAMIDE FUMARATE
  7. EPZICOM [Concomitant]
     Active Substance: ABACAVIR SULFATE\LAMIVUDINE
  8. NORVIR [Concomitant]
     Active Substance: RITONAVIR
  9. PREZISTA [Concomitant]
     Active Substance: DARUNAVIR ETHANOLATE
  10. REYATAZ [Concomitant]
     Active Substance: ATAZANAVIR SULFATE
  11. TIVICAY [Concomitant]
     Active Substance: DOLUTEGRAVIR SODIUM
  12. ADVAIR HFA [Concomitant]
     Active Substance: FLUTICASONE PROPIONATE\SALMETEROL XINAFOATE
  13. ALBUTEROL [Concomitant]
     Active Substance: ALBUTEROL
  14. AZITHROMYCIN [Concomitant]
     Active Substance: AZITHROMYCIN
  15. BENZONATATE [Concomitant]
     Active Substance: BENZONATATE
  16. BREO ELLIPTA [Concomitant]
     Active Substance: FLUTICASONE FUROATE\VILANTEROL TRIFENATATE
  17. CEFDINIR [Concomitant]
     Active Substance: CEFDINIR
  18. CHANTIX [Concomitant]
     Active Substance: VARENICLINE TARTRATE
  19. COMMIT [Concomitant]
     Active Substance: NICOTINE
  20. CYMBALTA [Concomitant]
     Active Substance: DULOXETINE HYDROCHLORIDE
  21. DICLOFENAC [Concomitant]
     Active Substance: DICLOFENAC
  22. DIPHENHYDRAMINE [Concomitant]
     Active Substance: DIPHENHYDRAMINE
  23. FLUCONAZOLE [Concomitant]
     Active Substance: FLUCONAZOLE
  24. FLUTICASONE [Concomitant]
     Active Substance: FLUTICASONE
  25. GABAPENTIN [Concomitant]
     Active Substance: GABAPENTIN
  26. INCRUSE ELLIPTA [Concomitant]
     Active Substance: UMECLIDINIUM BROMIDE
  27. IPRATROPIUM [Concomitant]
     Active Substance: IPRATROPIUM
  28. LORATADINE [Concomitant]
     Active Substance: LORATADINE
  29. LYRICA [Concomitant]
     Active Substance: PREGABALIN
  30. MONTELUKAST [Concomitant]
     Active Substance: MONTELUKAST SODIUM
  31. ONDANSETRON [Concomitant]
     Active Substance: ONDANSETRON
  32. OXYCODONE [Concomitant]
     Active Substance: OXYCODONE
  33. PEPCID [Concomitant]
     Active Substance: FAMOTIDINE
  34. PREDNISONE [Concomitant]
     Active Substance: PREDNISONE
  35. PREGABALIN [Concomitant]
     Active Substance: PREGABALIN
  36. PROAIR HFA [Concomitant]
     Active Substance: ALBUTEROL SULFATE
  37. SINGULAIR [Concomitant]
     Active Substance: MONTELUKAST SODIUM
  38. SPIRIVA [Concomitant]
     Active Substance: TIOTROPIUM BROMIDE MONOHYDRATE
  39. SULFAMETHOXAZOLE [Concomitant]
     Active Substance: SULFAMETHOXAZOLE
  40. TAMIFLU [Concomitant]
     Active Substance: OSELTAMIVIR PHOSPHATE
  41. TRAMADOL [Concomitant]
     Active Substance: TRAMADOL
  42. VENTOLIN [Concomitant]
     Active Substance: ALBUTEROL SULFATE
  43. VIRTUSSIN AC [Concomitant]
     Active Substance: CODEINE PHOSPHATE\GUAIFENESIN
  44. VITAMIN D2 [Concomitant]
     Active Substance: ERGOCALCIFEROL
  45. DICLOFENAC SODIUM [Concomitant]
     Active Substance: DICLOFENAC SODIUM

REACTIONS (19)
  - Osteoporosis [Not Recovered/Not Resolved]
  - Osteonecrosis [Unknown]
  - Compression fracture [Recovered/Resolved]
  - Spinal fracture [Unknown]
  - Bone density decreased [Unknown]
  - Emotional distress [Not Recovered/Not Resolved]
  - Anxiety [Not Recovered/Not Resolved]
  - Anhedonia [Not Recovered/Not Resolved]
  - Pain [Not Recovered/Not Resolved]
  - Fall [Unknown]
  - Upper limb fracture [Recovered/Resolved]
  - Humerus fracture [Unknown]
  - Rib fracture [Recovered/Resolved]
  - Osteoarthritis [Unknown]
  - Bone demineralisation [Unknown]
  - Ankle fracture [Recovered/Resolved]
  - Hypokinesia [Not Recovered/Not Resolved]
  - Mobility decreased [Not Recovered/Not Resolved]
  - Depression [Not Recovered/Not Resolved]

NARRATIVE: CASE EVENT DATE: 20070612
